FAERS Safety Report 9671916 (Version 1)
Quarter: 2013Q4

REPORT INFORMATION
  Report Type: Spontaneous
  Country: US (occurrence: US)
  Receive Date: 20131106
  Receipt Date: 20131106
  Transmission Date: 20140711
  Serious: Yes (Other)
  Sender: FDA-Public Use
  Company Number: US-DYAX CORP.-2013DX000195

PATIENT
  Sex: Female
  Weight: 52.21 kg

DRUGS (4)
  1. KALBITOR [Suspect]
     Indication: HEREDITARY ANGIOEDEMA
     Route: 058
  2. KALBITOR [Suspect]
     Route: 058
  3. KALBITOR [Suspect]
     Route: 058
     Dates: start: 201309, end: 201309
  4. KALBITOR [Suspect]
     Route: 058
     Dates: start: 201106, end: 201309

REACTIONS (4)
  - Anaphylactic reaction [Recovered/Resolved]
  - Bronchospasm [Recovered/Resolved]
  - Erythema [Recovered/Resolved]
  - Drug ineffective [Unknown]
